FAERS Safety Report 21398511 (Version 1)
Quarter: 2022Q3

REPORT INFORMATION
  Report Type: Spontaneous
  Country: US (occurrence: US)
  Receive Date: 20220930
  Receipt Date: 20220930
  Transmission Date: 20221027
  Serious: Yes (Hospitalization)
  Sender: FDA-Public Use
  Company Number: US-Fresenius Medical Care Renal Therapies Group-FMC-2208-001215

PATIENT
  Age: 56 Year
  Sex: Male
  Weight: 71.5 kg

DRUGS (2)
  1. DELFLEX WITH DEXTROSE 1.5% LOW MAGNESIUM LOW CALCIUM [Suspect]
     Active Substance: CALCIUM CHLORIDE\DEXTROSE\MAGNESIUM CHLORIDE\SODIUM CHLORIDE\SODIUM LACTATE
     Indication: End stage renal disease
     Dosage: 2300 ML FOR 6 CYCLES WITH A LAST FILL OF 2300 ML AND NO DAYTIME EXCHANGE
     Route: 033
  2. DELFLEX WITH DEXTROSE 2.5% LOW MAGNESIUM LOW CALCIUM [Suspect]
     Active Substance: CALCIUM CHLORIDE\DEXTROSE\MAGNESIUM CHLORIDE\SODIUM CHLORIDE\SODIUM LACTATE
     Indication: End stage renal disease
     Dosage: 2300 ML FOR 6 CYCLES WITH A LAST FILL OF 2300 ML AND NO DAYTIME EXCHANGE
     Route: 033

REACTIONS (3)
  - Abdominal distension [Unknown]
  - Peritonitis [Recovering/Resolving]
  - Asthenia [Recovering/Resolving]
